FAERS Safety Report 7515944-1 (Version None)
Quarter: 2011Q2

REPORT INFORMATION
  Report Type: 
  Country: None (occurrence: None)
  Receive Date: 20110601
  Receipt Date: 20110513
  Transmission Date: 20111010
  Serious: No
  Sender: FDA-Public Use
  Company Number: US-B.I. PHARMACEUTICALS,INC./RIDGEFIELD-2011-BP-09842BP

PATIENT
  Sex: Female
  Weight: 48.1 kg

DRUGS (15)
  1. ALTACE [Concomitant]
     Indication: CARDIAC DISORDER
     Dosage: 10 MG
     Route: 048
     Dates: start: 20070101
  2. FLUOXETINE [Concomitant]
     Indication: DEPRESSION
     Dosage: 20 MG
     Route: 048
     Dates: start: 20010101
  3. CRESTOR [Concomitant]
     Indication: HYPERCHOLESTEROLAEMIA
     Dosage: 20 MG
     Route: 048
     Dates: start: 20060101
  4. PRADAXA [Suspect]
     Indication: ATRIAL FIBRILLATION
     Dosage: 300 MG
     Route: 048
     Dates: start: 20110116, end: 20110228
  5. ACIDOPHILUS [Concomitant]
     Indication: ROUTINE HEALTH MAINTENANCE
     Route: 048
  6. SOTALOL HCL [Suspect]
     Indication: ATRIAL FIBRILLATION
     Dosage: 120 MG
     Route: 048
  7. LOVAZA [Concomitant]
     Indication: ROUTINE HEALTH MAINTENANCE
     Route: 048
  8. PRADAXA [Suspect]
     Dosage: 300 MG
     Route: 048
     Dates: start: 20110201
  9. LEVOXYL [Concomitant]
     Indication: HYPOTHYROIDISM
     Dosage: 0.88 MG
     Route: 048
     Dates: start: 20010101
  10. AMIODARONE HCL [Concomitant]
     Indication: ATRIAL FIBRILLATION
     Dosage: 100 MG
     Route: 048
     Dates: start: 20110401
  11. COQ10 [Concomitant]
     Indication: ROUTINE HEALTH MAINTENANCE
     Dosage: 200 MG
     Route: 048
  12. PRILOSEC [Concomitant]
     Indication: ULCER HAEMORRHAGE
  13. PRILOSEC [Concomitant]
     Indication: PROPHYLAXIS AGAINST GASTROINTESTINAL ULCER
     Route: 048
     Dates: start: 20060101
  14. ALTACE [Concomitant]
     Indication: HYPERTENSION
  15. NORVASC [Concomitant]
     Indication: HYPERTENSION
     Dosage: 2.5 MG
     Route: 048
     Dates: start: 20060101

REACTIONS (5)
  - DIZZINESS [None]
  - NAUSEA [None]
  - ASTHENIA [None]
  - TREMOR [None]
  - DECREASED APPETITE [None]
